FAERS Safety Report 23241625 (Version 2)
Quarter: 2023Q4

REPORT INFORMATION
  Report Type: Report from Study
  Country: CA (occurrence: CA)
  Receive Date: 20231129
  Receipt Date: 20231130
  Transmission Date: 20240109
  Serious: Yes (Death, Hospitalization)
  Sender: FDA-Public Use
  Company Number: CA-MYLANLABS-2023M1123866

PATIENT
  Age: 72 Year
  Sex: Male

DRUGS (1)
  1. CLOZAPINE [Suspect]
     Active Substance: CLOZAPINE
     Indication: Product used for unknown indication
     Dosage: UNK
     Route: 065
     Dates: start: 202102

REACTIONS (5)
  - Death [Fatal]
  - Oesophagitis ulcerative [Unknown]
  - Gastrointestinal haemorrhage [Unknown]
  - Electrolyte imbalance [Unknown]
  - COVID-19 [Unknown]

NARRATIVE: CASE EVENT DATE: 20231015
